FAERS Safety Report 7513897-3 (Version None)
Quarter: 2011Q2

REPORT INFORMATION
  Report Type: 
  Country: None (occurrence: None)
  Receive Date: 20110531
  Receipt Date: 20110517
  Transmission Date: 20111010
  Serious: Yes (Hospitalization, Other)
  Sender: FDA-Public Use
  Company Number: PHHY2010CA71702

PATIENT
  Sex: Male

DRUGS (7)
  1. SANDOSTATIN LAR [Suspect]
     Dosage: 30 MG, QMO
     Route: 030
  2. SANDOSTATIN LAR [Suspect]
     Dosage: 20 MG, EVERY 4 WEEK
     Route: 030
     Dates: start: 20100801
  3. RABEPRAZOLE SODIUM [Concomitant]
     Dosage: 20 MG, DAILY
  4. SANDOSTATIN LAR [Suspect]
     Dosage: 30 MG EVERY 4 WEEKS
     Route: 030
     Dates: end: 20110311
  5. SANDOSTATIN LAR [Suspect]
     Indication: GASTROINTESTINAL CANCER METASTATIC
     Dosage: 30 MG, QW4
     Route: 030
     Dates: start: 20101019
  6. SANDOSTATIN LAR [Suspect]
     Dosage: 30 MG, QMO
     Route: 030
  7. TERAZOSIN HCL [Concomitant]
     Dosage: 1 MG, BEDTIME

REACTIONS (13)
  - MYOCARDIAL ISCHAEMIA [None]
  - OSTEOLYSIS [None]
  - BLOOD GLUCOSE INCREASED [None]
  - CHEST PAIN [None]
  - HYPOAESTHESIA [None]
  - ABDOMINAL PAIN UPPER [None]
  - NAUSEA [None]
  - MYOCARDIAL INFARCTION [None]
  - RETCHING [None]
  - ASTHENIA [None]
  - DRY EYE [None]
  - VISUAL IMPAIRMENT [None]
  - PAIN IN EXTREMITY [None]
